FAERS Safety Report 21619227 (Version 2)
Quarter: 2022Q4

REPORT INFORMATION
  Report Type: Spontaneous
  Country: JP (occurrence: JP)
  Receive Date: 20221120
  Receipt Date: 20221204
  Transmission Date: 20230112
  Serious: Yes (Hospitalization)
  Sender: FDA-Public Use
  Company Number: JP-002147023-NVSJ2022JP098640

PATIENT
  Age: 70 Year
  Sex: Male

DRUGS (2)
  1. TAFINLAR [Suspect]
     Active Substance: DABRAFENIB MESYLATE
     Indication: Lung neoplasm malignant
     Dosage: 300 MG
     Route: 048
     Dates: start: 20220714, end: 20221003
  2. MEKINIST [Suspect]
     Active Substance: TRAMETINIB DIMETHYL SULFOXIDE
     Indication: Lung neoplasm malignant
     Dosage: 2 MG
     Route: 048
     Dates: start: 20220714, end: 20221003

REACTIONS (4)
  - Cerebral haemorrhage [Not Recovered/Not Resolved]
  - Headache [Unknown]
  - Altered state of consciousness [Unknown]
  - Meningitis [Recovering/Resolving]

NARRATIVE: CASE EVENT DATE: 20221001
